FAERS Safety Report 6055284-3 (Version None)
Quarter: 2009Q1

REPORT INFORMATION
  Report Type: 
  Country: None (occurrence: None)
  Receive Date: 20090123
  Receipt Date: 20090109
  Transmission Date: 20090719
  Serious: Yes (Hospitalization)
  Sender: FDA-Public Use
  Company Number: 140913

PATIENT
  Age: 63 Year
  Sex: Male

DRUGS (3)
  1. MORPHINE SULFATE [Suspect]
     Indication: PAIN
     Dosage: INJECTION
     Dates: start: 20070501
  2. BACLOFEN [Suspect]
     Indication: PAIN
     Dosage: INJECTION
     Dates: start: 20070501
  3. REBIF [Suspect]
     Indication: MULTIPLE SCLEROSIS
     Dosage: 44 MCG 3 TIMES DOR WEEK, 44 MCG 3 TIMES A WEEK, SUBCUTANEOUS
     Route: 058
     Dates: start: 20050101

REACTIONS (4)
  - CONSTIPATION [None]
  - EATING DISORDER [None]
  - MUSCULOSKELETAL DISORDER [None]
  - ORAL DISORDER [None]
